FAERS Safety Report 9328036 (Version 1)
Quarter: 2013Q2

REPORT INFORMATION
  Report Type: Spontaneous
  Country: US (occurrence: US)
  Receive Date: 20130604
  Receipt Date: 20130604
  Transmission Date: 20140414
  Serious: No
  Sender: FDA-Public Use
  Company Number: US-SANOFI-AVENTIS-2012SA030812

PATIENT
  Sex: Male

DRUGS (3)
  1. LANTUS [Suspect]
     Indication: TYPE 1 DIABETES MELLITUS
     Dosage: DOSE:24 UNIT(S)
     Route: 058
  2. LANTUS [Suspect]
     Indication: TYPE 1 DIABETES MELLITUS
     Dosage: DOSE:24 UNIT(S)
     Route: 058
     Dates: start: 20120424, end: 20120424
  3. HUMALOG [Suspect]
     Indication: TYPE 1 DIABETES MELLITUS
     Route: 065

REACTIONS (4)
  - Feeling abnormal [Unknown]
  - Blood glucose increased [Not Recovered/Not Resolved]
  - Overdose [Unknown]
  - Blood glucose decreased [Unknown]
